FAERS Safety Report 25887088 (Version 2)
Quarter: 2025Q4

REPORT INFORMATION
  Report Type: Spontaneous
  Country: JP (occurrence: JP)
  Receive Date: 20251006
  Receipt Date: 20251009
  Transmission Date: 20260117
  Serious: Yes (Death, Life-Threatening, Other)
  Sender: ELI LILLY AND COMPANY
  Company Number: JP-ELI_LILLY_AND_COMPANY-JP202510004685

PATIENT
  Age: 55 Year
  Sex: Female
  Weight: 49.2 kg

DRUGS (8)
  1. NECITUMUMAB [Suspect]
     Active Substance: NECITUMUMAB
     Indication: Lung squamous cell carcinoma recurrent
     Dosage: 800 MG
     Route: 042
     Dates: start: 20250819, end: 20250826
  2. GEMCITABINE [Suspect]
     Active Substance: GEMCITABINE
     Indication: Lung squamous cell carcinoma recurrent
     Dosage: 1800 MG
     Route: 042
     Dates: start: 20250819, end: 20250826
  3. CISPLATIN [Suspect]
     Active Substance: CISPLATIN
     Indication: Lung squamous cell carcinoma recurrent
     Dosage: 100 MG
     Route: 042
     Dates: start: 20250819, end: 20250819
  4. CARBOPLATIN [Suspect]
     Active Substance: CARBOPLATIN
     Indication: Lung squamous cell carcinoma recurrent
     Dosage: UNK
     Route: 065
     Dates: start: 20250122, end: 20250424
  5. ABRAXANE [Suspect]
     Active Substance: PACLITAXEL
     Indication: Lung squamous cell carcinoma recurrent
     Dosage: UNK
     Route: 065
     Dates: start: 20250122, end: 20250424
  6. PEMBROLIZUMAB [Suspect]
     Active Substance: PEMBROLIZUMAB
     Indication: Lung squamous cell carcinoma recurrent
     Dosage: UNK
     Route: 065
     Dates: start: 20250122, end: 20250424
  7. MAGNESOL [GLUCOSE;MAGNESIUM SULFATE] [Concomitant]
     Indication: Electrolyte substitution therapy
     Dosage: UNK
     Dates: start: 20250819, end: 20250819
  8. POTASSIUM CHLORIDE [Concomitant]
     Active Substance: POTASSIUM CHLORIDE
     Indication: Electrolyte substitution therapy
     Dosage: UNK
     Dates: start: 20250819, end: 20250819

REACTIONS (5)
  - Platelet count decreased [Fatal]
  - White blood cell count decreased [Fatal]
  - Haemoptysis [Fatal]
  - Cardio-respiratory arrest [Fatal]
  - Neutrophil count decreased [Unknown]

NARRATIVE: CASE EVENT DATE: 20250901
